FAERS Safety Report 12979842 (Version 1)
Quarter: 2016Q4

REPORT INFORMATION
  Report Type: Report from Study
  Country: BR (occurrence: BR)
  Receive Date: 20161128
  Receipt Date: 20161128
  Transmission Date: 20170207
  Serious: Yes (Other)
  Sender: FDA-Public Use
  Company Number: PHHY2016BR162934

PATIENT
  Age: 53 Year
  Sex: Female
  Weight: 66 kg

DRUGS (1)
  1. ACLASTA [Suspect]
     Active Substance: ZOLEDRONIC ACID
     Indication: OSTEOPOROSIS
     Dosage: 5 MG, Q12MO
     Route: 042

REACTIONS (2)
  - Foot fracture [Unknown]
  - Pain in extremity [Unknown]

NARRATIVE: CASE EVENT DATE: 201610
